FAERS Safety Report 24241308 (Version 1)
Quarter: 2024Q3

REPORT INFORMATION
  Report Type: Spontaneous
  Country: US (occurrence: US)
  Receive Date: 20240823
  Receipt Date: 20240823
  Transmission Date: 20241017
  Serious: Yes (Hospitalization, Other)
  Sender: AMGEN
  Company Number: US-AMGEN-USASP2024163040

PATIENT
  Age: 68 Year
  Sex: Male

DRUGS (12)
  1. BEVACIZUMAB [Suspect]
     Active Substance: BEVACIZUMAB
     Indication: Adenocarcinoma
     Dosage: UNK
     Route: 065
  2. PEGFILGRASTIM [Suspect]
     Active Substance: PEGFILGRASTIM
     Indication: Neutropenia
     Dosage: UNK
     Route: 065
  3. CAPECITABINE [Concomitant]
     Active Substance: CAPECITABINE
     Indication: Adenocarcinoma
     Dosage: UNK
     Route: 065
  4. OXALIPLATIN [Concomitant]
     Active Substance: OXALIPLATIN
     Indication: Adenocarcinoma
     Dosage: UNK
     Route: 065
  5. FLUOROURACIL [Concomitant]
     Active Substance: FLUOROURACIL
     Indication: Adenocarcinoma
     Dosage: UNK
     Route: 065
  6. LEUCOVORIN [Concomitant]
     Active Substance: LEUCOVORIN\LEUCOVORIN CALCIUM
     Indication: Adenocarcinoma
     Dosage: UNK
     Route: 065
  7. CEFTRIAXONE [Concomitant]
     Active Substance: CEFTRIAXONE\CEFTRIAXONE SODIUM
     Indication: Adenocarcinoma
     Dosage: 1 GRAM, QD
     Route: 065
  8. DEXAMETHASONE [Concomitant]
     Active Substance: DEXAMETHASONE
     Indication: Adenocarcinoma
     Dosage: UNK
     Route: 065
  9. VANCOMYCIN [Concomitant]
     Active Substance: VANCOMYCIN
     Indication: Adenocarcinoma
     Dosage: 1.5 GRAM, BID
     Route: 065
  10. CEFAZOLIN [Concomitant]
     Active Substance: CEFAZOLIN
     Indication: Adenocarcinoma
     Dosage: 2 GRAM, TID FOR 42 DAYS
     Route: 042
  11. GENTAMICIN [Concomitant]
     Active Substance: GENTAMICIN
     Indication: Adenocarcinoma
     Dosage: 03 MILLIGRAM/KILOGRAM, QD FOR 14 DAYS AFTER SENSITIVITIES
     Route: 042
  12. RIFAMPIN [Concomitant]
     Active Substance: RIFAMPIN
     Indication: Adenocarcinoma
     Dosage: 500 MILLIGRAM, QD
     Route: 065

REACTIONS (7)
  - Lymphadenopathy [Recovering/Resolving]
  - Staphylococcal infection [Recovering/Resolving]
  - Aortic valve incompetence [Recovering/Resolving]
  - Cardiac valve vegetation [Recovering/Resolving]
  - Aortic aneurysm [Recovering/Resolving]
  - Neutrophilia [Recovering/Resolving]
  - Neutropenia [Recovering/Resolving]
